FAERS Safety Report 23551951 (Version 1)
Quarter: 2024Q1

REPORT INFORMATION
  Report Type: Spontaneous
  Country: SE (occurrence: SE)
  Receive Date: 20240222
  Receipt Date: 20240222
  Transmission Date: 20240410
  Serious: Yes (Other)
  Sender: FDA-Public Use
  Company Number: None

PATIENT
  Age: 40 Year
  Sex: Male
  Weight: 73 kg

DRUGS (8)
  1. DULOXETINE HYDROCHLORIDE [Suspect]
     Active Substance: DULOXETINE HYDROCHLORIDE
     Indication: Anxiety
     Dosage: DULOXETIN TEVA, 1 CAPSULE AT 8 A.M. DAILY
     Route: 048
     Dates: start: 20221219, end: 20230308
  2. LISDEXAMFETAMINE DIMESYLATE [Suspect]
     Active Substance: LISDEXAMFETAMINE DIMESYLATE
     Indication: Autism spectrum disorder
     Dosage: 1 CAPSULE 50MG DAILY PLUS 1 CAPSULE 20MG DAILY IF NEEDED (TO BE TAKEN NO LATER THAN 12 NOON)
     Route: 048
     Dates: start: 20210601
  3. LISDEXAMFETAMINE DIMESYLATE [Suspect]
     Active Substance: LISDEXAMFETAMINE DIMESYLATE
     Indication: Autism spectrum disorder
     Dosage: 1 CAPSULE 50MG DAILY PLUS 1 CAPSULE 20MG DAILY IF NEEDED (TO BE TAKEN NO LATER THAN 12 NOON)
     Route: 048
     Dates: start: 20210601
  4. PROMETHAZINE HYDROCHLORIDE [Suspect]
     Active Substance: PROMETHAZINE HYDROCHLORIDE
     Indication: Anxiety
     Dosage: TIME INTERVAL: 1 AS NECESSARY: PROMETAZIN ACTAVIS, 1 TABLET IF NEEDED, MAX 2 TABLETS/DAY
     Route: 048
     Dates: start: 20221219, end: 20230914
  5. MIRTAZAPINE [Suspect]
     Active Substance: MIRTAZAPINE
     Indication: Insomnia
     Dosage: 2 15 MG TABLETS/DAY AT 20:00
     Route: 048
     Dates: start: 20230606, end: 20231011
  6. AMITRIPTYLINE HYDROCHLORIDE [Suspect]
     Active Substance: AMITRIPTYLINE HYDROCHLORIDE
     Indication: Pain
     Dosage: 1 TABLET/DAY ESCALATED EVERY 7 DAYS TO A MAXIMUM OF 70 MG/DAY
     Route: 048
     Dates: start: 20221115, end: 20221129
  7. HYDROXYZINE HYDROCHLORIDE [Suspect]
     Active Substance: HYDROXYZINE HYDROCHLORIDE
     Indication: Insomnia
     Dosage: TIME INTERVAL: AS NECESSARY: HYDROXIZIN OMET PHARMA,1 TABLET AS NEEDED, MAXIMUM 3 TABLETS DAILY
     Route: 048
     Dates: start: 20230912, end: 20230930
  8. QUETIAPINE [Suspect]
     Active Substance: QUETIAPINE
     Indication: Pain
     Dosage: 1 TABLET/DAY AT 20:00
     Route: 065
     Dates: start: 20220822, end: 20230320

REACTIONS (3)
  - Serotonin syndrome [Recovering/Resolving]
  - Mania [Recovering/Resolving]
  - Blood pressure increased [Recovering/Resolving]
